FAERS Safety Report 21621738 (Version 2)
Quarter: 2022Q4

REPORT INFORMATION
  Report Type: Spontaneous
  Country: US (occurrence: US)
  Receive Date: 20221121
  Receipt Date: 20221208
  Transmission Date: 20230113
  Serious: No
  Sender: FDA-Public Use
  Company Number: US-BAYER-2022A151862

PATIENT
  Age: 38 Year
  Sex: Female

DRUGS (3)
  1. MIRENA [Suspect]
     Active Substance: LEVONORGESTREL
     Indication: Endometriosis
     Dosage: 20?G/DAY
     Route: 015
     Dates: start: 20151226, end: 20220928
  2. MIRENA [Suspect]
     Active Substance: LEVONORGESTREL
     Indication: Premenstrual dysphoric disorder
  3. DILTIAZEM [Concomitant]
     Active Substance: DILTIAZEM
     Indication: Atrial tachycardia
     Dosage: UNK
     Dates: start: 20220510

REACTIONS (9)
  - Nausea [Recovering/Resolving]
  - Vomiting [Recovering/Resolving]
  - Electrolyte depletion [Recovering/Resolving]
  - Pelvic pain [Recovering/Resolving]
  - Arthralgia [Recovering/Resolving]
  - Insomnia [Recovering/Resolving]
  - Off label use of device [None]
  - Device use issue [None]
  - Alopecia [None]
